FAERS Safety Report 16920175 (Version 1)
Quarter: 2019Q4

REPORT INFORMATION
  Report Type: Spontaneous
  Country: US (occurrence: US)
  Receive Date: 20191015
  Receipt Date: 20191015
  Transmission Date: 20200122
  Serious: Yes (Life-Threatening)
  Sender: FDA-Public Use
  Company Number: None

PATIENT
  Age: 61 Year
  Sex: Female
  Weight: 83.25 kg

DRUGS (3)
  1. LISINOPRIL. [Suspect]
     Active Substance: LISINOPRIL
     Dates: start: 20180130, end: 20180730
  2. LYRICA [Concomitant]
     Active Substance: PREGABALIN
  3. TRAMADOL. [Concomitant]
     Active Substance: TRAMADOL

REACTIONS (5)
  - Flat affect [None]
  - Deafness [None]
  - Coma [None]
  - Renal failure [None]
  - Dyspnoea [None]

NARRATIVE: CASE EVENT DATE: 20180730
